FAERS Safety Report 9556277 (Version 1)
Quarter: 2013Q3

REPORT INFORMATION
  Report Type: Spontaneous
  Country: US (occurrence: None)
  Receive Date: 20130726
  Receipt Date: 20130726
  Transmission Date: 20140515
  Serious: Yes (Hospitalization)
  Sender: FDA-Public Use
  Company Number: UTC-032218

PATIENT
  Age: 15 Year
  Sex: Male
  Weight: 73 kg

DRUGS (4)
  1. REMODULIN [Suspect]
     Indication: PULMONARY ARTERIAL HYPERTENSION
     Dosage: 34.56 UG/KG (0.024 UG/KG, 1 IN 1 MIN)
     Route: 041
     Dates: start: 201212
  2. ADCIRCA (TADALAFIL) [Concomitant]
  3. REVATIO (SILDENAFIL CITRATE) [Concomitant]
  4. TRACLEER (BOSENTAN) [Concomitant]

REACTIONS (2)
  - Diarrhoea [None]
  - Device related infection [None]
